FAERS Safety Report 8065318-2 (Version None)
Quarter: 2012Q1

REPORT INFORMATION
  Report Type: 
  Country: None (occurrence: None)
  Receive Date: 20120124
  Receipt Date: 20120119
  Transmission Date: 20120608
  Serious: Yes (Life-Threatening, Hospitalization, Other)
  Sender: FDA-Public Use
  Company Number: US-BAYER-2011-032796

PATIENT
  Age: 20 Year
  Sex: Female
  Weight: 109 kg

DRUGS (8)
  1. AZITHROMYCIN [Concomitant]
     Dosage: 250 MG, UNK
     Route: 048
     Dates: start: 20090929
  2. XANAX [Concomitant]
     Indication: ANXIETY
     Dosage: 0.25 MG, EVERY 8 HOURS OR AS NEEDED
     Route: 048
     Dates: start: 20080101
  3. IBUPROFEN [Concomitant]
     Dosage: 800 MG, THREE TIMES DAILY OR AS NEEDED
     Route: 048
     Dates: start: 20090811
  4. XANAX [Concomitant]
     Dosage: UNK
     Dates: start: 20090811, end: 20090911
  5. ALBUTEROL [Concomitant]
     Dosage: UNK
     Route: 045
     Dates: start: 19990101, end: 20090101
  6. PROAIR HFA [Concomitant]
     Dosage: 2-4 PUFFS EVERY 4-6 HOURS
     Route: 045
     Dates: start: 20090929
  7. CYCLOBENZAPRINE [Concomitant]
     Dosage: 10 MG, THREE TIMES DAILY OR AS NEEDED
     Route: 048
     Dates: start: 20090811
  8. YAZ [Suspect]
     Indication: PREMENSTRUAL SYNDROME
     Dosage: UNK
     Dates: start: 20070201, end: 20091001

REACTIONS (7)
  - INJURY [None]
  - PULMONARY EMBOLISM [None]
  - DEEP VEIN THROMBOSIS [None]
  - CEREBROVASCULAR ACCIDENT [None]
  - MYOCARDIAL INFARCTION [None]
  - GALLBLADDER DISORDER [None]
  - PAIN [None]
